FAERS Safety Report 5731432-7 (Version None)
Quarter: 2008Q2

REPORT INFORMATION
  Report Type: 
  Country: None (occurrence: None)
  Receive Date: 20080508
  Receipt Date: 20080505
  Transmission Date: 20081010
  Serious: No
  Sender: FDA-Public Use
  Company Number: IT-ELI_LILLY_AND_COMPANY-IT200805000757

PATIENT
  Age: 60 Year
  Sex: Male

DRUGS (3)
  1. ZYPREXA [Suspect]
     Indication: SCHIZOPHRENIA
     Dosage: 10 MG, DAILY (1/D)
     Route: 048
  2. LANOXIN [Concomitant]
     Dosage: 0.125 MG, UNK
  3. COUMADIN [Concomitant]
     Dosage: UNK, AS NEEDED

REACTIONS (1)
  - LEUKOPENIA [None]
